FAERS Safety Report 8876709 (Version 3)
Quarter: 2013Q1

REPORT INFORMATION
  Report Type: Report from Study
  Country: US (occurrence: US)
  Receive Date: 20121029
  Receipt Date: 20130213
  Transmission Date: 20140127
  Serious: Yes (Hospitalization)
  Sender: FDA-Public Use
  Company Number: US-PFIZER INC-2012261003

PATIENT
  Age: 55 Year
  Sex: Male
  Weight: 70 kg

DRUGS (19)
  1. AXITINIB [Suspect]
     Indication: METASTATIC MALIGNANT MELANOMA
     Dosage: 5 MG, 2X/DAY, 2 WEEKS 1 WEEK OFF
     Route: 048
     Dates: start: 20120223, end: 20121009
  2. PACLITAXEL [Suspect]
     Indication: METASTATIC MALIGNANT MELANOMA
     Dosage: 725 MG IN DSW 250 ML IV OVER 30 MIN, EVERY 3 WEEKS
     Route: 042
     Dates: start: 20120315, end: 20120925
  3. CARBOPLATIN [Suspect]
     Indication: METASTATIC MALIGNANT MELANOMA
     Dosage: 370 MG IN NS 500 ML OVER 3 HOURS, EVERY 3 WEEKS
     Route: 042
     Dates: start: 20120315, end: 20120925
  4. OMNIPAQUE [Suspect]
     Indication: SCAN WITH CONTRAST
     Dosage: 147 CC, SINGLE DOSE
     Route: 042
     Dates: start: 20121009
  5. VITAMIN C [Concomitant]
     Dosage: 500 MG, QD
  6. ACETYLSALICYLIC ACID [Concomitant]
     Dosage: 81 MG, QD
  7. COENZYME Q10 [Concomitant]
     Dosage: 200 MG, QD
  8. PROPECIA [Concomitant]
     Dosage: 1 MG, QD
  9. PREVACID [Concomitant]
     Dosage: 30 MG, QD
  10. FOLIC ACID [Concomitant]
     Dosage: 1 TAB, QD
  11. BENICAR [Concomitant]
     Dosage: 20 MG, 1X/DAY
     Dates: start: 20120926, end: 20130205
  12. BENICAR [Concomitant]
     Dosage: 20 MG, QOD
     Dates: start: 20120926, end: 20130205
  13. OMEGA-3 TRIGLYCERIDES [Concomitant]
     Dosage: 1000 MG, BID
  14. SODIUM FLUORIDE [Concomitant]
     Dosage: 1.1 MG, QD
  15. VIAGRA [Concomitant]
     Dosage: 100 MG, PRN
  16. METOPROLOL [Concomitant]
     Dosage: 25 MG, BID
     Dates: start: 20120429
  17. IRON [Concomitant]
     Dosage: 45 MG, BID
     Dates: start: 20120426
  18. SYNTHROID [Concomitant]
     Dosage: 75 MG, QD
     Dates: start: 20120901, end: 20121220
  19. ZOFRAN [Concomitant]
     Dosage: 8 MG, PRN
     Dates: start: 20120720, end: 20120928

REACTIONS (1)
  - Blood creatinine increased [Recovered/Resolved]
